FAERS Safety Report 17026758 (Version 1)
Quarter: 2019Q4

REPORT INFORMATION
  Report Type: Spontaneous
  Country: US (occurrence: US)
  Receive Date: 20191112
  Receipt Date: 20191112
  Transmission Date: 20200122
  Serious: Yes (Disabling)
  Sender: FDA-Public Use
  Company Number: None

PATIENT
  Age: 63 Year
  Sex: Female
  Weight: 53.1 kg

DRUGS (13)
  1. CIALIS [Suspect]
     Active Substance: TADALAFIL
  2. WALKER [Concomitant]
  3. BABY ASPIRIN [Concomitant]
     Active Substance: ASPIRIN
  4. ALYQ [Suspect]
     Active Substance: TADALAFIL
  5. TOBI [Concomitant]
     Active Substance: TOBRAMYCIN
  6. TADALAFIL. [Suspect]
     Active Substance: TADALAFIL
  7. ADCIRCA [Suspect]
     Active Substance: TADALAFIL
  8. SILDENAFIL. [Suspect]
     Active Substance: SILDENAFIL
     Indication: PULMONARY ARTERIAL HYPERTENSION
     Dosage: ?          QUANTITY:1 CAPSULE(S);?
     Route: 048
     Dates: start: 20160416, end: 20190729
  9. TAMOXIFEN [Concomitant]
     Active Substance: TAMOXIFEN
  10. ALBUTEROL. [Concomitant]
     Active Substance: ALBUTEROL
  11. VOCSN-MULTIFUNCTION VENTILATOR [Concomitant]
  12. ELECTRIC  WHEELCHAIR [Concomitant]
  13. MUDCINEX [Concomitant]

REACTIONS (2)
  - Cataract [None]
  - Blindness unilateral [None]

NARRATIVE: CASE EVENT DATE: 20181130
